FAERS Safety Report 10962455 (Version 1)
Quarter: 2015Q1

REPORT INFORMATION
  Report Type: Spontaneous
  Country: US (occurrence: None)
  Receive Date: 20150226
  Receipt Date: 20150226
  Transmission Date: 20150721
  Serious: Yes (Other)
  Sender: FDA-Public Use
  Company Number: TPA2012A03048

PATIENT
  Age: 65 Year
  Sex: Male
  Weight: 78.93 kg

DRUGS (6)
  1. AMARYL (CLIMEPIRIDE) [Concomitant]
  2. PLAVIX (CLOPIDOGREL BISULFATE) [Concomitant]
  3. ACTOS [Suspect]
     Active Substance: PIOGLITAZONE HYDROCHLORIDE
     Indication: TYPE 2 DIABETES MELLITUS
     Dates: start: 20110114, end: 20120501
  4. AVANDIA (ROSIGLITAZONE MALEATE) [Concomitant]
  5. GLYCOSIDE (ALL OTHER THERAPEUTIC PRODUCTS) [Concomitant]
  6. LIPITOR [Concomitant]
     Active Substance: ATORVASTATIN CALCIUM

REACTIONS (3)
  - Bladder cancer [None]
  - Urinary tract infection [None]
  - Bladder obstruction [None]

NARRATIVE: CASE EVENT DATE: 20100609
